FAERS Safety Report 4995269-9 (Version None)
Quarter: 2006Q2

REPORT INFORMATION
  Report Type: 
  Country: None (occurrence: None)
  Receive Date: 20060508
  Receipt Date: 20060425
  Transmission Date: 20061013
  Serious: Yes (Hospitalization)
  Sender: FDA-Public Use
  Company Number: US-MERCK-0605USA00013

PATIENT
  Age: 47 Year
  Sex: Male
  Weight: 128 kg

DRUGS (2)
  1. VIOXX [Suspect]
     Route: 048
     Dates: start: 20011201
  2. CLONIDINE [Concomitant]
     Indication: HYPERHIDROSIS
     Route: 065

REACTIONS (8)
  - ANGINA PECTORIS [None]
  - BLOOD CHOLESTEROL INCREASED [None]
  - BLOOD TRIGLYCERIDES INCREASED [None]
  - CORONARY ARTERY DISEASE [None]
  - HEADACHE [None]
  - HYPERLIPIDAEMIA [None]
  - LETHARGY [None]
  - PAIN [None]
